FAERS Safety Report 13252974 (Version 1)
Quarter: 2017Q1

REPORT INFORMATION
  Report Type: Spontaneous
  Country: US (occurrence: US)
  Receive Date: 20170220
  Receipt Date: 20170220
  Transmission Date: 20170428
  Serious: No
  Sender: FDA-Public Use
  Company Number: US-MIKART, INC.-1063346

PATIENT
  Sex: Male

DRUGS (1)
  1. CHLORZOXAZONE. [Suspect]
     Active Substance: CHLORZOXAZONE
     Route: 048

REACTIONS (2)
  - Abdominal pain [Unknown]
  - Abdominal pain upper [Unknown]
